FAERS Safety Report 18915993 (Version 1)
Quarter: 2021Q1

REPORT INFORMATION
  Report Type: Report from Study
  Country: None (occurrence: US)
  Receive Date: 20210218
  Receipt Date: 20210218
  Transmission Date: 20210420
  Serious: Yes (Other)
  Sender: FDA-Public Use
  Company Number: US-ABBVIE-21K-163-3779402-00

PATIENT
  Age: 61 Year
  Sex: Female

DRUGS (1)
  1. RINVOQ [Suspect]
     Active Substance: UPADACITINIB
     Indication: RHEUMATOID ARTHRITIS
     Route: 048
     Dates: start: 20191106

REACTIONS (4)
  - Ear pain [Not Recovered/Not Resolved]
  - Cervix carcinoma [Not Recovered/Not Resolved]
  - Laryngitis [Not Recovered/Not Resolved]
  - Mouth injury [Not Recovered/Not Resolved]

NARRATIVE: CASE EVENT DATE: 202004
